FAERS Safety Report 8596356-9 (Version None)
Quarter: 2012Q3

REPORT INFORMATION
  Report Type: 
  Country: None (occurrence: None)
  Receive Date: 20120807
  Receipt Date: 20120807
  Transmission Date: 20120928
  Serious: Yes (Other)
  Sender: FDA-Public Use
  Company Number: None

PATIENT
  Sex: Female
  Weight: 83.9154 kg

DRUGS (1)
  1. RECLAST [Suspect]
     Indication: BONE DENSITY DECREASED
     Dosage: YEARLY
     Dates: start: 20120131

REACTIONS (12)
  - MALAISE [None]
  - THINKING ABNORMAL [None]
  - EYE PAIN [None]
  - BACK PAIN [None]
  - MEMORY IMPAIRMENT [None]
  - PHOBIA OF DRIVING [None]
  - PELVIC PAIN [None]
  - VISCERAL PAIN [None]
  - SOCIAL AVOIDANT BEHAVIOUR [None]
  - GAIT DISTURBANCE [None]
  - FATIGUE [None]
  - ARTHRALGIA [None]
